FAERS Safety Report 5166040-2 (Version None)
Quarter: 2006Q4

REPORT INFORMATION
  Report Type: 
  Country: None (occurrence: None)
  Receive Date: 20061128
  Receipt Date: 20061115
  Transmission Date: 20070319
  Serious: Yes (Other)
  Sender: FDA-Public Use
  Company Number: 2006BH014630

PATIENT

DRUGS (1)
  1. PROMETHAZINE [Suspect]
     Indication: DRUG USE FOR UNKNOWN INDICATION
     Dosage: 25 MG;IVBOL
     Route: 040
     Dates: start: 20060101, end: 20060101

REACTIONS (5)
  - BURNING SENSATION [None]
  - INJECTION SITE MASS [None]
  - MEDICATION ERROR [None]
  - PAIN [None]
  - WRONG TECHNIQUE IN DRUG USAGE PROCESS [None]
